FAERS Safety Report 5390494-X (Version None)
Quarter: 2007Q3

REPORT INFORMATION
  Report Type: 
  Country: None (occurrence: None)
  Receive Date: 20070718
  Receipt Date: 20060713
  Transmission Date: 20080115
  Serious: No
  Sender: FDA-Public Use
  Company Number: US-KINGPHARMUSA00001-K200600916

PATIENT

DRUGS (1)
  1. LEVOXYL [Suspect]
     Indication: HYPOTHYROIDISM
     Dosage: 50 MCG, QD
     Route: 048

REACTIONS (5)
  - ASTHENIA [None]
  - HYPERHIDROSIS [None]
  - PSYCHOMOTOR HYPERACTIVITY [None]
  - TINNITUS [None]
  - TREMOR [None]
